FAERS Safety Report 10877085 (Version 1)
Quarter: 2015Q1

REPORT INFORMATION
  Report Type: Spontaneous
  Country: US (occurrence: None)
  Receive Date: 20150224
  Receipt Date: 20150224
  Transmission Date: 20150721
  Serious: Yes (Other)
  Sender: FDA-Public Use
  Company Number: 2015COR00031

PATIENT
  Age: 29 Year
  Sex: Female

DRUGS (3)
  1. CLOZAPINE (CLOZAPINE) [Suspect]
     Active Substance: CLOZAPINE
     Indication: SCHIZOPHRENIA
     Route: 048
  2. BENZTROPINE [Suspect]
     Active Substance: BENZTROPINE
     Indication: SCHIZOPHRENIA
  3. BROMCRIPTINE (BROMOCRIPTINE) [Concomitant]

REACTIONS (9)
  - Faecaloma [None]
  - Gastrointestinal necrosis [None]
  - Ileus [None]
  - Metabolic acidosis [None]
  - Aggression [None]
  - Colitis ischaemic [None]
  - Therapy change [None]
  - Unresponsive to stimuli [None]
  - Delusion [None]
